FAERS Safety Report 24894314 (Version 1)
Quarter: 2025Q1

REPORT INFORMATION
  Report Type: Spontaneous
  Country: US (occurrence: None)
  Receive Date: 20250127
  Receipt Date: 20250127
  Transmission Date: 20250409
  Serious: No
  Sender: FDA-CTU
  Company Number: None

PATIENT
  Age: 60 Year
  Sex: Male
  Weight: 79.38 kg

DRUGS (2)
  1. SEROQUEL [Suspect]
     Active Substance: QUETIAPINE FUMARATE
  2. COGENTIN [Suspect]
     Active Substance: BENZTROPINE MESYLATE

REACTIONS (5)
  - Mucosal dryness [None]
  - Fatigue [None]
  - Somnolence [None]
  - Asthenia [None]
  - Device computer issue [None]

NARRATIVE: CASE EVENT DATE: 20241101
